FAERS Safety Report 6662872-X (Version None)
Quarter: 2010Q2

REPORT INFORMATION
  Report Type: 
  Country: None (occurrence: None)
  Receive Date: 20100401
  Receipt Date: 20100325
  Transmission Date: 20101027
  Serious: Yes (Hospitalization, Other)
  Sender: FDA-Public Use
  Company Number: ES-RANBAXY-2010US-32709

PATIENT

DRUGS (1)
  1. AMOXICILLIN AND CLAVULANATE POTASSIUM [Suspect]
     Indication: TOOTH INFECTION
     Dosage: UNK, UNK
     Route: 065

REACTIONS (2)
  - ANAPHYLACTIC REACTION [None]
  - MYOCARDIAL ISCHAEMIA [None]
